FAERS Safety Report 8962981 (Version 1)
Quarter: 2012Q4

REPORT INFORMATION
  Report Type: Report from Study
  Country: US (occurrence: US)
  Receive Date: 20121213
  Receipt Date: 20121213
  Transmission Date: 20130627
  Serious: Yes (Hospitalization)
  Sender: FDA-Public Use
  Company Number: US-ROCHE-540287

PATIENT
  Age: 41 Year
  Sex: Female
  Weight: 90.7 kg

DRUGS (1)
  1. CAPECITABINE [Suspect]
     Indication: BREAST CANCER
     Dosage: STOPPED AFTER 4TH CYCLE
     Route: 048
     Dates: start: 20071219, end: 20080222

REACTIONS (7)
  - Constipation [Unknown]
  - Palmar-plantar erythrodysaesthesia syndrome [Recovering/Resolving]
  - Nausea [Recovered/Resolved]
  - Vomiting [Recovered/Resolved]
  - Pain [Unknown]
  - Erythema [Unknown]
  - Skin exfoliation [Unknown]
